FAERS Safety Report 23479977 (Version 1)
Quarter: 2024Q1

REPORT INFORMATION
  Report Type: Spontaneous
  Country: US (occurrence: US)
  Receive Date: 20240205
  Receipt Date: 20240205
  Transmission Date: 20240410
  Serious: No
  Sender: FDA-Public Use
  Company Number: US-UCBSA-2023053152

PATIENT
  Age: 51 Year
  Sex: Male

DRUGS (3)
  1. LEVETIRACETAM [Suspect]
     Active Substance: LEVETIRACETAM
     Indication: Post-anoxic myoclonus
     Dosage: UNK
  2. LEVETIRACETAM [Suspect]
     Active Substance: LEVETIRACETAM
     Indication: Off label use
     Dosage: UNK, SUPRATHERAPEUTIC DOSE
  3. LORAZEPAM [Concomitant]
     Active Substance: LORAZEPAM
     Indication: Post-anoxic myoclonus
     Dosage: UNK, SUPRATHERAPEUTIC

REACTIONS (1)
  - No adverse event [Unknown]
